FAERS Safety Report 8858802 (Version 1)
Quarter: 2012Q4

REPORT INFORMATION
  Report Type: Spontaneous
  Country: US (occurrence: None)
  Receive Date: 20121023
  Receipt Date: 20121023
  Transmission Date: 20130627
  Serious: Yes (Hospitalization)
  Sender: FDA-Public Use
  Company Number: None

PATIENT
  Age: 29 Year
  Sex: Female
  Weight: 92.99 kg

DRUGS (1)
  1. MIRENA [Suspect]
     Indication: CONTRACEPTION
     Dosage: ONE TIME INSERTION  5YRS.
     Dates: start: 20080830, end: 20080905

REACTIONS (3)
  - Abdominal pain lower [None]
  - Vulvovaginal pain [None]
  - Uterine perforation [None]
